FAERS Safety Report 4325834-3 (Version None)
Quarter: 2004Q1

REPORT INFORMATION
  Report Type: 
  Country: None (occurrence: None)
  Receive Date: 20040329
  Receipt Date: 20040127
  Transmission Date: 20041129
  Serious: Yes (Hospitalization)
  Sender: FDA-Public Use
  Company Number: PHEH2004US01216

PATIENT
  Age: 65 Year
  Sex: Female

DRUGS (10)
  1. AREDIA [Suspect]
     Indication: MULTIPLE MYELOMA
     Dosage: UNK, QMO
     Dates: start: 20000701, end: 20030401
  2. THALIDOMIDE [Concomitant]
     Dates: start: 20001001, end: 20010801
  3. CHEMOTHERAPEUTICS,OTHER [Concomitant]
     Dates: start: 20001001
  4. PREDNISONE [Concomitant]
     Dates: start: 20001001, end: 20011001
  5. ACYCLOVIR [Concomitant]
     Indication: HERPES VIRUS INFECTION
     Dosage: 400 MG, UNK
  6. FUROSEMIDE [Concomitant]
     Indication: HYPERTENSION
     Dosage: 10 MG, UNK
  7. ATENOLOL [Concomitant]
     Indication: HYPERTENSION
     Dosage: 100 MG, UNK
  8. ASPIRIN [Concomitant]
     Dosage: 81 MG, UNK
  9. ZETIA [Concomitant]
     Indication: HYPERCHOLESTEROLAEMIA
     Dates: start: 20030101
  10. LIPITOR [Concomitant]
     Indication: HYPERCHOLESTEROLAEMIA
     Dosage: UNK?UNK
     Dates: end: 20030101

REACTIONS (2)
  - DISEASE PROGRESSION [None]
  - PSYCHOTIC DISORDER [None]
